FAERS Safety Report 5645493-7 (Version None)
Quarter: 2008Q1

REPORT INFORMATION
  Report Type: 
  Country: None (occurrence: None)
  Receive Date: 20080229
  Receipt Date: 20071211
  Transmission Date: 20080703
  Serious: No
  Sender: FDA-Public Use
  Company Number: US-BRISTOL-MYERS SQUIBB COMPANY-14011183

PATIENT
  Age: 61 Year
  Sex: Male

DRUGS (7)
  1. TAXOL [Suspect]
  2. CARBOPLATIN [Concomitant]
  3. LIPITOR [Concomitant]
  4. NORVASC [Concomitant]
  5. COMPAZINE [Concomitant]
  6. DECADRON [Concomitant]
  7. INDAPAMIDE [Concomitant]

REACTIONS (1)
  - HICCUPS [None]
